FAERS Safety Report 16876577 (Version 1)
Quarter: 2019Q4

REPORT INFORMATION
  Report Type: Spontaneous
  Country: US (occurrence: US)
  Receive Date: 20191002
  Receipt Date: 20191002
  Transmission Date: 20200122
  Serious: Yes (Other)
  Sender: FDA-Public Use
  Company Number: US-ACCORD-156073

PATIENT
  Sex: Male

DRUGS (1)
  1. QUETIAPINE ACCORD [Suspect]
     Active Substance: QUETIAPINE
     Indication: PRODUCT USED FOR UNKNOWN INDICATION
     Dosage: STRENGTH: 400 MG

REACTIONS (1)
  - Intestinal haemorrhage [Recovered/Resolved]
